FAERS Safety Report 8519145-X (Version None)
Quarter: 2012Q3

REPORT INFORMATION
  Report Type: 
  Country: None (occurrence: None)
  Receive Date: 20120709
  Receipt Date: 20120628
  Transmission Date: 20120928
  Serious: Yes (Hospitalization, Other)
  Sender: FDA-Public Use
  Company Number: ADR-2012-01228

PATIENT
  Sex: Female

DRUGS (3)
  1. BACLOFEN [Suspect]
     Indication: MUSCLE SPASTICITY
  2. BACLOFEN [Suspect]
     Indication: SPINAL CORD INJURY
  3. LIORESAL [Concomitant]

REACTIONS (3)
  - UNRESPONSIVE TO STIMULI [None]
  - HYPOTENSION [None]
  - UROSEPSIS [None]
